FAERS Safety Report 21713543 (Version 1)
Quarter: 2022Q4

REPORT INFORMATION
  Report Type: Report from Study
  Country: US (occurrence: US)
  Receive Date: 20221212
  Receipt Date: 20221212
  Transmission Date: 20230112
  Serious: No
  Sender: FDA-Public Use
  Company Number: US-BIOVITRUM-2022US13496

PATIENT
  Sex: Female

DRUGS (2)
  1. KINERET [Suspect]
     Active Substance: ANAKINRA
     Indication: Rheumatoid arthritis
     Dosage: 100MG/0.67ML
     Dates: start: 20211224
  2. KINERET [Suspect]
     Active Substance: ANAKINRA
     Dates: start: 20211222

REACTIONS (2)
  - Pain [Unknown]
  - Drug ineffective [Unknown]
